FAERS Safety Report 7031930-2 (Version None)
Quarter: 2010Q4

REPORT INFORMATION
  Report Type: 
  Country: None (occurrence: None)
  Receive Date: 20101007
  Receipt Date: 20100929
  Transmission Date: 20110411
  Serious: Yes (Other)
  Sender: FDA-Public Use
  Company Number: US-TEVA-250060USA

PATIENT
  Age: 41 Year
  Sex: Female

DRUGS (1)
  1. VERAPAMIL TABLET 80MG [Suspect]
     Indication: HYPERTENSION

REACTIONS (1)
  - ABORTION SPONTANEOUS [None]
